FAERS Safety Report 7309957-2 (Version None)
Quarter: 2011Q1

REPORT INFORMATION
  Report Type: 
  Country: None (occurrence: None)
  Receive Date: 20110210
  Receipt Date: 20110120
  Transmission Date: 20110831
  Serious: Yes (Death)
  Sender: FDA-Public Use
  Company Number: AE11-012-1

PATIENT
  Age: 26 Year
  Sex: Male

DRUGS (4)
  1. LORCET-HD [Suspect]
  2. AMPHETAMIN/DEXTROAMPHETAMINE [Suspect]
  3. MARIJUANA [Suspect]
  4. MORPHINE [Suspect]

REACTIONS (2)
  - MULTIPLE DRUG OVERDOSE INTENTIONAL [None]
  - CARDIO-RESPIRATORY ARREST [None]
